FAERS Safety Report 13350993 (Version 6)
Quarter: 2018Q2

REPORT INFORMATION
  Report Type: Spontaneous
  Country: US (occurrence: US)
  Receive Date: 20170320
  Receipt Date: 20180618
  Transmission Date: 20180711
  Serious: Yes (Other)
  Sender: FDA-Public Use
  Company Number: US-PFIZER INC-2017118375

PATIENT
  Age: 67 Year
  Sex: Female
  Weight: 113 kg

DRUGS (8)
  1. XELJANZ XR [Suspect]
     Active Substance: TOFACITINIB CITRATE
     Dosage: 11 MG, 1X/DAY
     Route: 048
  2. METHOTREXATE. [Concomitant]
     Active Substance: METHOTREXATE
     Dosage: 20 MG, WEEKLY
  3. METHOTREXATE. [Concomitant]
     Active Substance: METHOTREXATE
     Indication: IMMUNOSUPPRESSANT DRUG THERAPY
     Dosage: UNK UNK, WEEKLY (2.5 (X10) WKLY)
     Dates: start: 2005
  4. FOLIC ACID. [Concomitant]
     Active Substance: FOLIC ACID
     Dosage: 1 MG, DAILY
     Dates: start: 2010
  5. LISINOPRIL. [Concomitant]
     Active Substance: LISINOPRIL
     Indication: HYPERTENSION
     Dosage: 40 MG, DAILY
     Dates: start: 1998
  6. AMLODIPINE [Concomitant]
     Active Substance: AMLODIPINE BESYLATE
     Dosage: 1 DF, 1X/DAY; (ONE IN EVENING )
  7. XELJANZ XR [Suspect]
     Active Substance: TOFACITINIB CITRATE
     Indication: RHEUMATOID ARTHRITIS
     Dosage: 11 MG, UNK (X1)
  8. AMLODIPINE [Concomitant]
     Active Substance: AMLODIPINE BESYLATE
     Indication: HYPERTENSION
     Dosage: 5 MG, DAILY
     Dates: start: 2015

REACTIONS (7)
  - Lower respiratory tract infection [Not Recovered/Not Resolved]
  - Pancreatitis [Not Recovered/Not Resolved]
  - Drug dose omission [Unknown]
  - Temperature intolerance [Unknown]
  - Dyspepsia [Not Recovered/Not Resolved]
  - Cough [Not Recovered/Not Resolved]
  - Dyspnoea [Unknown]

NARRATIVE: CASE EVENT DATE: 201701
